FAERS Safety Report 15908611 (Version 1)
Quarter: 2019Q1

REPORT INFORMATION
  Report Type: Spontaneous
  Country: US (occurrence: US)
  Receive Date: 20190204
  Receipt Date: 20190204
  Transmission Date: 20190417
  Serious: No
  Sender: FDA-Public Use
  Company Number: US-ABBVIE-18K-163-2301552-00

PATIENT
  Age: 36 Year
  Sex: Female
  Weight: 71.1 kg

DRUGS (6)
  1. HUMIRA [Suspect]
     Active Substance: ADALIMUMAB
     Indication: RHEUMATOID ARTHRITIS
     Route: 058
  2. ENBREL [Suspect]
     Active Substance: ETANERCEPT
     Indication: RHEUMATOID ARTHRITIS
     Route: 065
     Dates: start: 201706
  3. METHOTREXATE. [Suspect]
     Active Substance: METHOTREXATE
     Route: 065
  4. XELJANZ [Concomitant]
     Active Substance: TOFACITINIB CITRATE
     Indication: PRODUCT USED FOR UNKNOWN INDICATION
  5. METHOTREXATE. [Suspect]
     Active Substance: METHOTREXATE
     Indication: RHEUMATOID ARTHRITIS
     Route: 065
  6. LEUCOVORIN. [Concomitant]
     Active Substance: LEUCOVORIN
     Indication: PRODUCT USED FOR UNKNOWN INDICATION

REACTIONS (17)
  - Peripheral swelling [Not Recovered/Not Resolved]
  - Injection site pruritus [Unknown]
  - Pain in extremity [Unknown]
  - Dizziness [Unknown]
  - Joint swelling [Not Recovered/Not Resolved]
  - Drug ineffective [Unknown]
  - Synovitis [Unknown]
  - Obesity [Unknown]
  - Injection site erythema [Unknown]
  - Alopecia [Unknown]
  - Bronchitis [Unknown]
  - Rheumatoid nodule [Unknown]
  - Vomiting [Unknown]
  - Rash [Unknown]
  - Mouth ulceration [Unknown]
  - Nausea [Unknown]
  - Pharyngitis [Unknown]

NARRATIVE: CASE EVENT DATE: 201711
